FAERS Safety Report 12396981 (Version 1)
Quarter: 2016Q2

REPORT INFORMATION
  Report Type: Spontaneous
  Country: GB (occurrence: GB)
  Receive Date: 20160524
  Receipt Date: 20160524
  Transmission Date: 20160815
  Serious: Yes (Other)
  Sender: FDA-Public Use
  Company Number: GB-AUROBINDO-AUR-APL-2016-06189

PATIENT
  Age: 32 Year
  Sex: Female
  Weight: 45 kg

DRUGS (1)
  1. MIRTAZAPINE. [Suspect]
     Active Substance: MIRTAZAPINE
     Indication: INSOMNIA
     Dosage: 15 MG, UNK
     Route: 048
     Dates: start: 20160219, end: 20160318

REACTIONS (11)
  - Insomnia [Recovering/Resolving]
  - Constipation [Recovered/Resolved]
  - Vertigo [Recovered/Resolved]
  - Withdrawal syndrome [Unknown]
  - Restless legs syndrome [Recovered/Resolved]
  - Back pain [Recovered/Resolved]
  - Pruritus generalised [Recovered/Resolved]
  - Paraesthesia [Recovered/Resolved]
  - Oedema peripheral [Recovered/Resolved]
  - Somnolence [Recovered/Resolved]
  - Nightmare [Recovered/Resolved]

NARRATIVE: CASE EVENT DATE: 20160219
